FAERS Safety Report 8549446-0 (Version None)
Quarter: 2012Q3

REPORT INFORMATION
  Report Type: 
  Country: None (occurrence: None)
  Receive Date: 20120720
  Receipt Date: 20120720
  Transmission Date: 20120928
  Serious: Yes (Life-Threatening, Hospitalization, Disabling)
  Sender: FDA-Public Use
  Company Number: None

PATIENT
  Age: 74 Year
  Sex: Female
  Weight: 40 kg

DRUGS (1)
  1. PRADAXA [Suspect]
     Indication: ATRIAL FIBRILLATION
     Dosage: 75 MG BID PO
     Route: 048

REACTIONS (11)
  - CREATININE RENAL CLEARANCE DECREASED [None]
  - SEDATION [None]
  - AGITATION [None]
  - DRUG DOSE OMISSION [None]
  - ATRIAL FIBRILLATION [None]
  - INCORRECT DOSE ADMINISTERED [None]
  - AGGRESSION [None]
  - EMBOLIC STROKE [None]
  - DELIRIUM [None]
  - CELLULITIS [None]
  - REFUSAL OF TREATMENT BY PATIENT [None]
